FAERS Safety Report 6240663-1 (Version None)
Quarter: 2009Q2

REPORT INFORMATION
  Report Type: 
  Country: None (occurrence: None)
  Receive Date: 20090623
  Receipt Date: 20081210
  Transmission Date: 20091009
  Serious: No
  Sender: FDA-Public Use
  Company Number: US-ASTRAZENECA-2008UW27711

PATIENT
  Age: 42 Year
  Sex: Male
  Weight: 77.1 kg

DRUGS (1)
  1. PULMICORT-100 [Suspect]
     Indication: ASTHMA
     Route: 055

REACTIONS (1)
  - BLOOD GLUCOSE DECREASED [None]
